FAERS Safety Report 20429908 (Version 1)
Quarter: 2022Q1

REPORT INFORMATION
  Report Type: Report from Study
  Country: FR (occurrence: FR)
  Receive Date: 20220204
  Receipt Date: 20220204
  Transmission Date: 20220423
  Serious: Yes (Hospitalization)
  Sender: FDA-Public Use
  Company Number: FR-SERVIER-S18010975

PATIENT

DRUGS (25)
  1. ONCASPAR [Suspect]
     Active Substance: PEGASPARGASE
     Indication: Acute lymphocytic leukaemia
     Dosage: UNK IU QD, ON D12
     Route: 042
     Dates: start: 20180205
  2. ONCASPAR [Suspect]
     Active Substance: PEGASPARGASE
     Dosage: 2175 IU QD, ON D15
     Route: 042
     Dates: start: 20180319, end: 20180319
  3. ONCASPAR [Suspect]
     Active Substance: PEGASPARGASE
     Dosage: 2125 IU QD, ON D43
     Route: 042
     Dates: start: 20180416, end: 20180416
  4. ONCASPAR [Suspect]
     Active Substance: PEGASPARGASE
     Dosage: UNK UI QD
     Dates: end: 20180515
  5. ONCASPAR [Suspect]
     Active Substance: PEGASPARGASE
     Dosage: UNK UI QD
     Dates: start: 20180810
  6. TN UNSPECIFIED [Concomitant]
     Indication: Acute lymphocytic leukaemia
     Dosage: 1.2 MG QD, ON D1
     Route: 065
     Dates: start: 20180201, end: 20180201
  7. TN UNSPECIFIED [Concomitant]
     Dosage: 1.3 MG QD, ON D15
     Route: 065
     Dates: start: 20180319, end: 20180319
  8. TN UNSPECIFIED [Concomitant]
     Dosage: 1.3 MG QD, ON D22
     Route: 065
     Dates: start: 20180326, end: 20180326
  9. TN UNSPECIFIED [Concomitant]
     Dosage: 1.28 MG QD, ON D43
     Route: 065
     Dates: start: 20180416, end: 20180416
  10. TN UNSPECIFIED [Concomitant]
     Dosage: 1.28 MG QD, ON D50
     Route: 065
     Dates: start: 20180423, end: 20180423
  11. TN UNSPECIFIED [Concomitant]
     Indication: Acute lymphocytic leukaemia
     Dosage: 714 MG QD, FROM D1 TO D14
     Route: 048
  12. TN UNSPECIFIED [Concomitant]
     Dosage: 714 MG QD, FROM D29 TO D42
     Route: 048
  13. TN UNSPECIFIED [Concomitant]
     Indication: Acute lymphocytic leukaemia
     Dosage: 850 MG QD, ON D1
     Route: 065
     Dates: start: 20180305
  14. TN UNSPECIFIED [Concomitant]
     Dosage: 840 MG QD, ON D29
     Route: 065
     Dates: start: 20180403
  15. TN UNSPECIFIED [Concomitant]
     Indication: Acute lymphocytic leukaemia
     Dosage: 255 MG QD, FROM D3 TO D6
     Route: 065
  16. TN UNSPECIFIED [Concomitant]
     Dosage: 30 MG QD, ON D3
     Route: 037
  17. TN UNSPECIFIED [Concomitant]
     Dosage: 255 MG QD, FROM D10 TO D13
     Route: 065
  18. TN UNSPECIFIED [Concomitant]
     Dosage: 252 MG QD, FROM D31 TO D34
     Route: 065
  19. TN UNSPECIFIED [Concomitant]
     Dosage: 30 MG QD, ON D31
     Route: 037
  20. TN UNSPECIFIED [Concomitant]
     Dosage: 252 MG QD, FROM D38 TO D41
     Route: 065
  21. TN UNSPECIFIED [Concomitant]
     Indication: Acute lymphocytic leukaemia
     Dosage: 12 MG QD, ON D3
     Route: 037
  22. TN UNSPECIFIED [Concomitant]
     Dosage: 12 MG QD, ON D31
     Route: 037
  23. Cortic [Concomitant]
     Indication: Product used for unknown indication
     Dosage: 15 MG QD, ON D3
     Route: 037
  24. Cortic [Concomitant]
     Dosage: 15 MG QD, ON D31
     Route: 037
  25. BACTRIM [Concomitant]
     Active Substance: SULFAMETHOXAZOLE\TRIMETHOPRIM
     Indication: Product used for unknown indication
     Dosage: 600 MG, 3 TIMES WEEKLY (MON, WED AND FRI)
     Route: 065

REACTIONS (1)
  - Febrile bone marrow aplasia [Recovered/Resolved]

NARRATIVE: CASE EVENT DATE: 20180424
